FAERS Safety Report 14319200 (Version 7)
Quarter: 2018Q4

REPORT INFORMATION
  Report Type: Spontaneous
  Country: IT (occurrence: IT)
  Receive Date: 20171222
  Receipt Date: 20181022
  Transmission Date: 20190204
  Serious: Yes (Death, Hospitalization)
  Sender: FDA-Public Use
  Company Number: IT-TEVA-2017-IT-839081

PATIENT
  Age: 78 Year
  Sex: Male
  Weight: 70 kg

DRUGS (26)
  1. ORAMORPH [Concomitant]
     Active Substance: MORPHINE SULFATE
     Indication: ARTHRALGIA
  2. ORAMORPH [Concomitant]
     Active Substance: MORPHINE SULFATE
     Indication: PAIN IN EXTREMITY
  3. PREDNISONE. [Suspect]
     Active Substance: PREDNISONE
     Indication: PAIN IN EXTREMITY
     Route: 048
  4. ABIRATERONE. [Suspect]
     Active Substance: ABIRATERONE ACETATE
     Indication: PROSTATE CANCER
     Dosage: 1000 MILLIGRAM DAILY;
     Route: 048
     Dates: start: 20151020
  5. MATRIFEN [Suspect]
     Active Substance: FENTANYL
     Indication: ARTHRALGIA
     Route: 048
     Dates: end: 201709
  6. SOLDESAM [Concomitant]
     Active Substance: DEXAMETHASONE
     Indication: PAIN IN EXTREMITY
     Dosage: 64 GTT DAILY;
     Route: 048
     Dates: start: 20170802
  7. CALCIUM SANDOZ [Concomitant]
     Active Substance: CALCIUM
     Indication: HYPOCALCAEMIA
     Dosage: .5 DOSAGE FORMS DAILY;
     Route: 048
     Dates: start: 20170823, end: 20170919
  8. PREDNISONE. [Suspect]
     Active Substance: PREDNISONE
     Indication: PROSTATE CANCER
     Dosage: 10 MILLIGRAM DAILY;
     Route: 048
     Dates: start: 20151020
  9. OXYCONTIN [Suspect]
     Active Substance: OXYCODONE HYDROCHLORIDE
     Indication: PAIN IN EXTREMITY
     Route: 048
     Dates: start: 20170803
  10. DELTACORTENE [Concomitant]
     Active Substance: PREDNISONE
     Indication: PAIN IN EXTREMITY
     Dosage: 12.5 MILLIGRAM DAILY;
     Route: 048
     Dates: start: 20170901, end: 20171103
  11. FENTANYL. [Concomitant]
     Active Substance: FENTANYL
     Indication: PAIN IN EXTREMITY
     Route: 048
     Dates: start: 201709
  12. FENTANYL. [Concomitant]
     Active Substance: FENTANYL
     Indication: PAIN IN EXTREMITY
     Dosage: 50MCG/HOUR EVERY 3 DAYS
     Route: 062
     Dates: start: 20170726
  13. VELLOFENT [Concomitant]
     Indication: PAIN IN EXTREMITY
     Route: 060
     Dates: start: 20170901, end: 20171103
  14. ORAMORPH [Concomitant]
     Active Substance: MORPHINE SULFATE
     Indication: PAIN IN EXTREMITY
     Route: 048
     Dates: start: 20170726, end: 20171103
  15. TACHIPIRINA [Concomitant]
     Active Substance: ACETAMINOPHEN
     Indication: PAIN IN EXTREMITY
     Route: 048
     Dates: start: 20170901, end: 20171003
  16. MATRIFEN [Suspect]
     Active Substance: FENTANYL
     Route: 062
     Dates: start: 20170726
  17. ZOMETA [Concomitant]
     Active Substance: ZOLEDRONIC ACID
     Indication: PROSTATE CANCER
     Route: 042
     Dates: start: 20111108, end: 20170727
  18. TACHIPIRINA [Concomitant]
     Active Substance: ACETAMINOPHEN
     Route: 048
     Dates: start: 201709, end: 20171003
  19. CALCIUM GLUCONATE. [Concomitant]
     Active Substance: CALCIUM GLUCONATE
     Indication: HYPOCALCAEMIA
     Dosage: .5 DOSAGE FORMS DAILY;
     Route: 048
     Dates: start: 20170823, end: 20170919
  20. ENZALUTAMIDE [Suspect]
     Active Substance: ENZALUTAMIDE
     Indication: PROSTATE CANCER
     Dosage: 160 MILLIGRAM DAILY;
     Route: 048
     Dates: start: 20140603
  21. SOLDESAM [Concomitant]
     Active Substance: DEXAMETHASONE
     Indication: ARTHRALGIA
  22. ENANTONE LP [Concomitant]
     Active Substance: LEUPROLIDE ACETATE
     Route: 030
  23. LYRICA [Concomitant]
     Active Substance: PREGABALIN
     Indication: PAIN IN EXTREMITY
     Route: 048
     Dates: start: 201704
  24. MATRIFEN [Suspect]
     Active Substance: FENTANYL
     Indication: PAIN IN EXTREMITY
     Route: 061
     Dates: start: 20170726
  25. OXYCONTIN [Suspect]
     Active Substance: OXYCODONE HYDROCHLORIDE
     Indication: ARTHRALGIA
     Dosage: 20 MILLIGRAM DAILY;
     Route: 048
     Dates: start: 20170803
  26. ENANTONE LP [Concomitant]
     Active Substance: LEUPROLIDE ACETATE
     Indication: PROSTATE CANCER
     Route: 030

REACTIONS (4)
  - Pyrexia [Fatal]
  - Weight decreased [Recovered/Resolved]
  - Neoplasm progression [Fatal]
  - Decreased appetite [Recovered/Resolved]

NARRATIVE: CASE EVENT DATE: 20170912
